FAERS Safety Report 24274597 (Version 1)
Quarter: 2024Q3

REPORT INFORMATION
  Report Type: Spontaneous
  Country: CN (occurrence: CN)
  Receive Date: 20240902
  Receipt Date: 20240902
  Transmission Date: 20241016
  Serious: Yes (Other)
  Sender: NOVARTIS
  Company Number: CN-002147023-NVSC2024CN173504

PATIENT
  Sex: Male

DRUGS (1)
  1. INCLISIRAN [Suspect]
     Active Substance: INCLISIRAN
     Indication: Product used for unknown indication
     Dosage: UNK
     Route: 065

REACTIONS (12)
  - Blood triglycerides increased [Unknown]
  - Blood glucose increased [Unknown]
  - Blood urea increased [Unknown]
  - Blood creatinine increased [Unknown]
  - Blood uric acid increased [Unknown]
  - Blood cholesterol increased [Unknown]
  - Free fatty acids increased [Unknown]
  - High density lipoprotein decreased [Unknown]
  - Very low density lipoprotein increased [Unknown]
  - Apolipoprotein A-I decreased [Unknown]
  - Apolipoprotein B decreased [Unknown]
  - Drug effect less than expected [Unknown]
